FAERS Safety Report 23411901 (Version 6)
Quarter: 2024Q3

REPORT INFORMATION
  Report Type: Spontaneous
  Country: GB (occurrence: GB)
  Receive Date: 20240117
  Receipt Date: 20240708
  Transmission Date: 20241017
  Serious: Yes (Other)
  Sender: MYLAN
  Company Number: GB-MYLANLABS-2023M1103129

PATIENT
  Age: 33 Year
  Sex: Female

DRUGS (5)
  1. CLOZARIL [Suspect]
     Active Substance: CLOZAPINE
     Indication: Schizophrenia
     Dosage: UNK
     Route: 048
     Dates: start: 20230612
  2. CLOZARIL [Suspect]
     Active Substance: CLOZAPINE
     Dosage: UNK
     Route: 048
     Dates: start: 20240126
  3. CLOZARIL [Suspect]
     Active Substance: CLOZAPINE
     Dosage: UNK
     Route: 048
     Dates: start: 20240320, end: 20240610
  4. CLOZARIL [Suspect]
     Active Substance: CLOZAPINE
     Dosage: UNK
     Route: 065
  5. FILGRASTIM [Concomitant]
     Active Substance: FILGRASTIM
     Dosage: UNK (TWICE WEEKLY)
     Route: 065

REACTIONS (10)
  - Hallucination, auditory [Unknown]
  - Neutropenia [Recovered/Resolved]
  - Full blood count abnormal [Unknown]
  - White blood cell count decreased [Recovered/Resolved]
  - Tachycardia [Unknown]
  - Eosinophil count decreased [Not Recovered/Not Resolved]
  - Product dose omission issue [Unknown]
  - Neutrophilia [Unknown]
  - Leukocytosis [Unknown]
  - Off label use [Unknown]

NARRATIVE: CASE EVENT DATE: 20230925
